FAERS Safety Report 13267433 (Version 1)
Quarter: 2017Q1

REPORT INFORMATION
  Report Type: Spontaneous
  Country: US (occurrence: US)
  Receive Date: 20170223
  Receipt Date: 20170223
  Transmission Date: 20170428
  Serious: No
  Sender: FDA-Public Use
  Company Number: None

PATIENT
  Age: 59 Year
  Sex: Female

DRUGS (1)
  1. COSENTYX [Suspect]
     Active Substance: SECUKINUMAB
     Indication: PSORIATIC ARTHROPATHY
     Dosage: 2PENS (300MG) EVERY 4 WEEKS SUBCUTANEOUSLY
     Route: 058
     Dates: start: 201610

REACTIONS (2)
  - Skin disorder [None]
  - Gait disturbance [None]
